FAERS Safety Report 5588452-5 (Version None)
Quarter: 2008Q1

REPORT INFORMATION
  Report Type: 
  Country: None (occurrence: None)
  Receive Date: 20080111
  Receipt Date: 20080103
  Transmission Date: 20080703
  Serious: Yes (Hospitalization, Disabling)
  Sender: FDA-Public Use
  Company Number: US-MERCK-0801USA00411

PATIENT
  Age: 66 Year
  Sex: Male

DRUGS (7)
  1. JANUVIA [Suspect]
     Indication: BLOOD GLUCOSE
     Route: 048
     Dates: start: 20070614
  2. METFORMIN [Concomitant]
     Route: 065
  3. SIMVASTATIN [Concomitant]
     Route: 048
  4. LISINOPRIL [Concomitant]
     Route: 048
  5. HYDROCHLOROTHIAZIDE [Concomitant]
     Route: 048
  6. ALLOPURINOL [Concomitant]
     Route: 065
  7. NORVASC [Concomitant]
     Route: 065

REACTIONS (1)
  - TREMOR [None]
